FAERS Safety Report 9902244 (Version 2)
Quarter: 2014Q1

REPORT INFORMATION
  Report Type: Report from Study
  Country: DE (occurrence: DE)
  Receive Date: 20140217
  Receipt Date: 20140217
  Transmission Date: 20141002
  Serious: Yes (Other)
  Sender: FDA-Public Use
  Company Number: DE-PFIZER INC-2014028929

PATIENT
  Sex: 0

DRUGS (2)
  1. PEGVISOMANT [Suspect]
     Indication: ACROMEGALY
     Dosage: UNK
  2. LANREOTIDE [Concomitant]
     Dosage: UNK

REACTIONS (1)
  - Pituitary tumour [Not Recovered/Not Resolved]
